FAERS Safety Report 19681585 (Version 2)
Quarter: 2021Q4

REPORT INFORMATION
  Report Type: Report from Study
  Country: PH (occurrence: PH)
  Receive Date: 20210810
  Receipt Date: 20211020
  Transmission Date: 20220303
  Serious: Yes (Hospitalization, Other)
  Sender: FDA-Public Use
  Company Number: PH-TAKEDA-2021TUS048767

PATIENT
  Sex: Female

DRUGS (1)
  1. BRENTUXIMAB VEDOTIN [Suspect]
     Active Substance: BRENTUXIMAB VEDOTIN
     Indication: Hodgkin^s disease refractory
     Dosage: 100 MILLIGRAM
     Route: 042
     Dates: start: 20210608

REACTIONS (2)
  - Dyspnoea [Unknown]
  - Device related infection [Unknown]
